FAERS Safety Report 8033153-7 (Version None)
Quarter: 2012Q1

REPORT INFORMATION
  Report Type: 
  Country: None (occurrence: None)
  Receive Date: 20120110
  Receipt Date: 20120110
  Transmission Date: 20120608
  Serious: Yes (Other)
  Sender: FDA-Public Use
  Company Number: None

PATIENT
  Age: 50 Year
  Sex: Male
  Weight: 102.05 kg

DRUGS (1)
  1. LEVOFLOXACIN [Suspect]
     Indication: SINUSITIS
     Dosage: 500 MG
     Route: 048
     Dates: start: 20111231, end: 20120104

REACTIONS (12)
  - SENSORY LOSS [None]
  - VOMITING [None]
  - PARAESTHESIA [None]
  - PAIN IN EXTREMITY [None]
  - INCORRECT DRUG ADMINISTRATION DURATION [None]
  - ABASIA [None]
  - OEDEMA PERIPHERAL [None]
  - SWELLING FACE [None]
  - PARAESTHESIA ORAL [None]
  - LARYNGITIS [None]
  - DYSPNOEA [None]
  - INFLUENZA [None]
